FAERS Safety Report 9474905 (Version 3)
Quarter: 2013Q3

REPORT INFORMATION
  Report Type: Report from Study
  Country: CA (occurrence: CA)
  Receive Date: 20130823
  Receipt Date: 20130827
  Transmission Date: 20140515
  Serious: Yes (Hospitalization)
  Sender: FDA-Public Use
  Company Number: CA-TEVA-418653USA

PATIENT
  Age: 75 Year
  Sex: Male
  Weight: 96.6 kg

DRUGS (2)
  1. CUSTIRSEN [Suspect]
     Indication: PROSTATE CANCER
     Dosage: LOADING DOSE X3
     Route: 042
     Dates: start: 20130709, end: 20130710
  2. IBUPROFEN [Suspect]

REACTIONS (2)
  - Gastrointestinal haemorrhage [Recovered/Resolved]
  - Urinary tract infection [Recovered/Resolved]
